FAERS Safety Report 19467029 (Version 3)
Quarter: 2024Q3

REPORT INFORMATION
  Report Type: Spontaneous
  Country: US (occurrence: US)
  Receive Date: 20210628
  Receipt Date: 20240718
  Transmission Date: 20241016
  Serious: Yes (Hospitalization, Other)
  Sender: CIPLA
  Company Number: US-CIPLA LTD.-2021US04312

PATIENT

DRUGS (4)
  1. WARFARIN [Suspect]
     Active Substance: WARFARIN
     Indication: Atrial fibrillation
     Dosage: 5 MG, DAILY
     Route: 065
  2. ASPIRIN [Suspect]
     Active Substance: ASPIRIN
     Indication: Atrial fibrillation
     Dosage: 81 MILLIGRAM DAILY
     Route: 065
  3. TRIAMCINOLONE [Concomitant]
     Active Substance: TRIAMCINOLONE
     Indication: Arthropathy
     Dosage: 1.0 ML OR 40 MG
     Route: 014
  4. BUPIVACAINE [Concomitant]
     Active Substance: BUPIVACAINE
     Indication: Arthropathy
     Dosage: 1.5 ML, UNK
     Route: 014

REACTIONS (1)
  - Haematoma muscle [Recovered/Resolved]
